FAERS Safety Report 9513581 (Version 1)
Quarter: 2013Q3

REPORT INFORMATION
  Report Type: Report from Study
  Country: GB (occurrence: GB)
  Receive Date: 20130910
  Receipt Date: 20130910
  Transmission Date: 20140515
  Serious: Yes (Hospitalization)
  Sender: FDA-Public Use
  Company Number: GB-AMGEN-GBRCT2013062727

PATIENT
  Age: 68 Year
  Sex: Male
  Weight: 74.97 kg

DRUGS (2)
  1. ETANERCEPT [Suspect]
     Indication: RHEUMATOID ARTHRITIS
     Dosage: 25 MG, 2 TIMES/WK
     Route: 065
     Dates: start: 20031016, end: 20130226
  2. METHOTREXATE [Concomitant]
     Dosage: UNK
     Dates: end: 20130226

REACTIONS (2)
  - Dyspnoea [Unknown]
  - Dry eye [Unknown]
